FAERS Safety Report 9330595 (Version 1)
Quarter: 2013Q2

REPORT INFORMATION
  Report Type: Report from Study
  Country: CA (occurrence: CA)
  Receive Date: 20130605
  Receipt Date: 20130605
  Transmission Date: 20140414
  Serious: Yes (Death)
  Sender: FDA-Public Use
  Company Number: PHHY2013CA056474

PATIENT
  Sex: Female

DRUGS (3)
  1. ACLASTA [Suspect]
     Indication: OSTEOPOROSIS
     Dosage: UNK
     Route: 042
     Dates: start: 20100421
  2. ACLASTA [Suspect]
     Dosage: UNK
     Route: 042
     Dates: start: 20110421
  3. ACLASTA [Suspect]
     Dosage: UNK
     Route: 042
     Dates: start: 20120417

REACTIONS (1)
  - Death [Fatal]
